FAERS Safety Report 6641277-1 (Version None)
Quarter: 2010Q1

REPORT INFORMATION
  Report Type: 
  Country: None (occurrence: None)
  Receive Date: 20100318
  Receipt Date: 20100304
  Transmission Date: 20100710
  Serious: Yes (Hospitalization)
  Sender: FDA-Public Use
  Company Number: US-CELGENEUS-163-20785-10020447

PATIENT
  Sex: Female

DRUGS (1)
  1. THALOMID [Suspect]
     Indication: PLASMACYTOMA
     Route: 048
     Dates: start: 20090401, end: 20091201

REACTIONS (3)
  - ASTHENIA [None]
  - HYPOAESTHESIA [None]
  - PAIN [None]
